FAERS Safety Report 13820244 (Version 5)
Quarter: 2020Q3

REPORT INFORMATION
  Report Type: Spontaneous
  Country: IT (occurrence: IT)
  Receive Date: 20170801
  Receipt Date: 20200701
  Transmission Date: 20201102
  Serious: Yes (Hospitalization, Other)
  Sender: FDA-Public Use
  Company Number: IT-AUROBINDO-AUR-APL-2017-37903

PATIENT
  Age: 59 Year
  Sex: Male

DRUGS (13)
  1. KETOPROFEN. [Interacting]
     Active Substance: KETOPROFEN
     Indication: PROSTATITIS
     Dosage: UNK
     Route: 065
  2. BARNIDIPINE [Concomitant]
     Active Substance: BARNIDIPINE
     Indication: PRODUCT USED FOR UNKNOWN INDICATION
     Dosage: UNK
     Route: 065
  3. ALFUZOSIN [Concomitant]
     Active Substance: ALFUZOSIN
     Indication: PRODUCT USED FOR UNKNOWN INDICATION
     Dosage: UNK
     Route: 065
  4. ALOGLIPTIN;PIOGLITAZONE [Concomitant]
     Indication: PRODUCT USED FOR UNKNOWN INDICATION
     Dosage: UNK
     Route: 065
  5. OMEPRAZOLE. [Concomitant]
     Active Substance: OMEPRAZOLE
     Indication: PRODUCT USED FOR UNKNOWN INDICATION
     Dosage: UNK
     Route: 065
  6. OMEGA 3 ACID ETHYL ESTERS [Concomitant]
     Active Substance: OMEGA-3-ACID ETHYL ESTERS
     Indication: PRODUCT USED FOR UNKNOWN INDICATION
     Route: 065
  7. ACETYLSALICYLIC ACID [Interacting]
     Active Substance: ASPIRIN
     Indication: PROSTATITIS
     Dosage: UNK
     Route: 065
  8. RIFAMPICIN [Interacting]
     Active Substance: RIFAMPIN
     Indication: PROSTATITIS
     Dosage: UNK
     Route: 065
  9. FOSFOMYCIN [Interacting]
     Active Substance: FOSFOMYCIN
     Indication: PROSTATITIS
     Dosage: UNK
     Route: 065
  10. CIPROFLOXACIN. [Suspect]
     Active Substance: CIPROFLOXACIN
     Indication: PROSTATITIS
     Dosage: UNK
     Route: 065
  11. METFORMIN [Interacting]
     Active Substance: METFORMIN HYDROCHLORIDE
     Indication: DIABETES MELLITUS
     Dosage: 2500 MG, DAILY
     Route: 065
  12. TELMISARTAN. [Concomitant]
     Active Substance: TELMISARTAN
     Indication: PRODUCT USED FOR UNKNOWN INDICATION
     Dosage: UNK
     Route: 065
  13. ADACAI [Concomitant]
     Indication: PRODUCT USED FOR UNKNOWN INDICATION
     Dosage: UNK
     Route: 065

REACTIONS (7)
  - Drug interaction [Unknown]
  - Dyspnoea [Recovered/Resolved]
  - Acute kidney injury [Recovered/Resolved]
  - Blood pH decreased [Recovered/Resolved]
  - Lactic acidosis [Recovered/Resolved]
  - Drug level increased [Unknown]
  - Altered state of consciousness [Recovered/Resolved]
